FAERS Safety Report 6649474-6 (Version None)
Quarter: 2010Q1

REPORT INFORMATION
  Report Type: 
  Country: None (occurrence: None)
  Receive Date: 20100324
  Receipt Date: 20100316
  Transmission Date: 20100710
  Serious: Yes (Other)
  Sender: FDA-Public Use
  Company Number: GB-ABBOTT-09P-167-0498172-00

PATIENT
  Sex: Female
  Weight: 73.9 kg

DRUGS (5)
  1. HUMIRA [Suspect]
     Indication: DRUG USE FOR UNKNOWN INDICATION
     Route: 058
     Dates: start: 20081223, end: 20081223
  2. PENTASA [Concomitant]
     Indication: CROHN'S DISEASE
     Route: 048
     Dates: start: 20020101
  3. BUDESONIDE [Concomitant]
     Indication: CROHN'S DISEASE
     Route: 048
  4. PPI [Concomitant]
     Indication: CROHN'S DISEASE
     Route: 048
  5. OMEPRAZOLE [Concomitant]
     Indication: CROHN'S DISEASE
     Route: 048

REACTIONS (6)
  - BALANCE DISORDER [None]
  - DIZZINESS [None]
  - HYPOAESTHESIA [None]
  - INFUSION SITE INFLAMMATION [None]
  - INJECTION SITE REACTION [None]
  - VISION BLURRED [None]
